FAERS Safety Report 5645590-6 (Version None)
Quarter: 2008Q1

REPORT INFORMATION
  Report Type: 
  Country: None (occurrence: None)
  Receive Date: 20080229
  Receipt Date: 20080225
  Transmission Date: 20080703
  Serious: Yes (Hospitalization)
  Sender: FDA-Public Use
  Company Number: US-BAXTER-2008BH001624

PATIENT
  Sex: Female

DRUGS (1)
  1. HEPARIN SODIUM [Suspect]
     Indication: DRUG USE FOR UNKNOWN INDICATION
     Route: 065
     Dates: start: 20080222, end: 20080222

REACTIONS (8)
  - BLOOD PRESSURE DECREASED [None]
  - CARDIO-RESPIRATORY ARREST [None]
  - DIZZINESS [None]
  - GRAND MAL CONVULSION [None]
  - HEART RATE DECREASED [None]
  - HYPERHIDROSIS [None]
  - NAUSEA [None]
  - RASH MACULO-PAPULAR [None]
